FAERS Safety Report 10409926 (Version 1)
Quarter: 2014Q3

REPORT INFORMATION
  Report Type: Spontaneous
  Country: US (occurrence: None)
  Receive Date: 20140825
  Receipt Date: 20140825
  Transmission Date: 20150326
  Serious: Yes (Life-Threatening)
  Sender: FDA-Public Use
  Company Number: None

PATIENT
  Age: 57 Year
  Sex: Female
  Weight: 83.92 kg

DRUGS (1)
  1. ZOLPIDEM TARTRATE ER [Suspect]
     Active Substance: ZOLPIDEM TARTRATE
     Indication: INSOMNIA
     Dosage: 1 AS NEEDED @ BEDTIME  ONCE DAILY TAKEN BY MOUTH
     Route: 048

REACTIONS (1)
  - Adverse reaction [None]

NARRATIVE: CASE EVENT DATE: 20140517
